FAERS Safety Report 8838242 (Version 1)
Quarter: 2012Q4

REPORT INFORMATION
  Report Type: 
  Country: US (occurrence: US)
  Receive Date: 20121012
  Receipt Date: 20121012
  Transmission Date: 20130627
  Serious: No
  Sender: FDA-Public Use
  Company Number: US-PFIZER INC-2012253961

PATIENT
  Age: 54 Year
  Sex: Female
  Weight: 58.96 kg

DRUGS (1)
  1. LYRICA [Suspect]
     Indication: PAIN
     Dosage: 50 mg, 1x/day
     Route: 048
     Dates: start: 20120910, end: 201209

REACTIONS (2)
  - Vision blurred [Not Recovered/Not Resolved]
  - Vision blurred [Unknown]
